FAERS Safety Report 21671802 (Version 1)
Quarter: 2022Q4

REPORT INFORMATION
  Report Type: Spontaneous
  Country: IT (occurrence: IT)
  Receive Date: 20221202
  Receipt Date: 20221202
  Transmission Date: 20230113
  Serious: Yes (Hospitalization, Other)
  Sender: FDA-Public Use
  Company Number: None

PATIENT
  Age: 53 Year
  Sex: Male

DRUGS (4)
  1. METHOTREXATE [Suspect]
     Active Substance: METHOTREXATE
     Indication: Seronegative arthritis
     Dosage: 15 MILLIGRAM PER WEEK
     Route: 048
  2. PREDNISOLONE [Suspect]
     Active Substance: PREDNISOLONE
     Indication: Seronegative arthritis
     Dosage: 7.5 MILLIGRAM PER DAY
     Route: 048
  3. PREDNISOLONE [Suspect]
     Active Substance: PREDNISOLONE
     Dosage: 60 MILLIGRAM PER DAY, WITH WEEKLY TAPERING
     Route: 048
  4. ADALIMUMAB [Suspect]
     Active Substance: ADALIMUMAB
     Indication: Ulcerative keratitis
     Dosage: UNK
     Route: 065

REACTIONS (6)
  - Optic disc disorder [Unknown]
  - Retinal haemorrhage [Unknown]
  - Cystoid macular oedema [Unknown]
  - Vitritis [Unknown]
  - Cataract [Unknown]
  - Whipple^s disease [Unknown]
